FAERS Safety Report 18649562 (Version 1)
Quarter: 2020Q4

REPORT INFORMATION
  Report Type: Spontaneous
  Country: NL (occurrence: NL)
  Receive Date: 20201222
  Receipt Date: 20201222
  Transmission Date: 20210114
  Serious: Yes (Death, Life-Threatening)
  Sender: FDA-Public Use
  Company Number: NL-TEVA-2020-NL-1859909

PATIENT
  Sex: Female

DRUGS (2)
  1. OXAZEPAM / BRAND NAME NOT SPECIFIED [Concomitant]
     Active Substance: OXAZEPAM
     Dosage: 30 TO 50 MG PER DAY FOR THE LAST 5 DAYS BEFORE SUICIDE, NO OTHER MEDICATION BEFORE,THERAPY START DAT
  2. TAMOXIFEN TABLET 10MG / BRAND NAME NOT SPECIFIED [Suspect]
     Active Substance: TAMOXIFEN
     Indication: BREAST CANCER
     Dosage: UNKNOWN , THERAPY END DATE : ASKED BUT UNKNOWN
     Dates: start: 2020

REACTIONS (3)
  - Suicidal ideation [Unknown]
  - Depressed mood [Unknown]
  - Completed suicide [Fatal]
